FAERS Safety Report 10069349 (Version 1)
Quarter: 2014Q2

REPORT INFORMATION
  Report Type: Spontaneous
  Country: IN (occurrence: IN)
  Receive Date: 20140409
  Receipt Date: 20140409
  Transmission Date: 20141212
  Serious: Yes (Other)
  Sender: FDA-Public Use
  Company Number: IN-MERCK-1404IND004239

PATIENT
  Sex: Male

DRUGS (1)
  1. JANUVIA [Suspect]
     Indication: DIABETES MELLITUS
     Dosage: 200 MG, 2X/DAY
     Route: 048

REACTIONS (3)
  - Tinea pedis [Recovered/Resolved]
  - Inappropriate schedule of drug administration [Unknown]
  - Overdose [Unknown]
